FAERS Safety Report 20601740 (Version 3)
Quarter: 2022Q3

REPORT INFORMATION
  Report Type: Spontaneous
  Country: JP (occurrence: JP)
  Receive Date: 20220316
  Receipt Date: 20220715
  Transmission Date: 20221027
  Serious: Yes (Hospitalization)
  Sender: FDA-Public Use
  Company Number: JP-GLAXOSMITHKLINE-JP2022JPN044452

PATIENT

DRUGS (10)
  1. SOTROVIMAB [Suspect]
     Active Substance: SOTROVIMAB
     Indication: COVID-19
     Dosage: 500 MG, NUMBER OF DOSES: 1
     Dates: start: 20220208
  2. VEKLURY [Concomitant]
     Active Substance: REMDESIVIR
     Indication: COVID-19
     Dosage: 200 MG ON DAY 1, 100 MG ON DAY 2-3, NUMBER OF DOSES: 3
     Dates: start: 20220205, end: 20220207
  3. LUSEFI TABLET [Concomitant]
     Indication: Diabetes mellitus
     Dosage: 2.5 MG, QD, AFTER BREAKFAST
  4. PRAVASTATIN NA TABLETS [Concomitant]
     Indication: Hyperlipidaemia
     Dosage: 10 MG, QD, AFTER DINNER
  5. AMLODIPINE BESYLATE [Concomitant]
     Active Substance: AMLODIPINE BESYLATE
     Indication: Hypertension
     Dosage: 5 MG, QD, AFTER BREAKFAST
  6. GLICLAZIDE [Concomitant]
     Active Substance: GLICLAZIDE
     Indication: Diabetes mellitus
     Dosage: 10 MG, QD, AFTER BREAKFAST
  7. EZETIMIBE TABLET [Concomitant]
     Indication: Hyperlipidaemia
     Dosage: 10 MG, QD, AFTER DINNER
  8. ACETAMINOPHEN [Concomitant]
     Active Substance: ACETAMINOPHEN
     Dosage: 200 MG, AT PYREXIA OF 38.0 C OR HIGHER, WHEN SUPPOSITORY COULD NOT BE USED
  9. SENNOSIDES [Concomitant]
     Active Substance: SENNOSIDES
     Dosage: 24 MG, WHEN HAVING CONSTIPATION
  10. HEPARINOID OIL-BASED CREAM 0.3% [Concomitant]
     Dosage: QD

REACTIONS (1)
  - Hospitalisation [Unknown]
